FAERS Safety Report 16646804 (Version 1)
Quarter: 2019Q3

REPORT INFORMATION
  Report Type: Spontaneous
  Country: GB (occurrence: GB)
  Receive Date: 20190730
  Receipt Date: 20190730
  Transmission Date: 20191004
  Serious: Yes (Other)
  Sender: FDA-Public Use
  Company Number: GB-PFIZER INC-2019319142

PATIENT
  Age: 50 Year
  Sex: Female

DRUGS (1)
  1. DEPO-MEDRONE [Suspect]
     Active Substance: METHYLPREDNISOLONE
     Dosage: UNK

REACTIONS (4)
  - Sciatic nerve injury [Unknown]
  - Product administration error [Unknown]
  - Amnesia [Unknown]
  - Cataract [Unknown]
